FAERS Safety Report 18295006 (Version 4)
Quarter: 2021Q4

REPORT INFORMATION
  Report Type: Spontaneous
  Country: US (occurrence: US)
  Receive Date: 20200922
  Receipt Date: 20211214
  Transmission Date: 20220303
  Serious: No
  Sender: FDA-Public Use
  Company Number: US-GLOBAL BLOOD THERAPEUTICS INC-US-GBT-20-02010

PATIENT
  Age: 36 Year
  Sex: Female

DRUGS (12)
  1. OXBRYTA [Suspect]
     Active Substance: VOXELOTOR
     Indication: Sickle cell disease
     Route: 048
     Dates: start: 20200603, end: 202010
  2. OXBRYTA [Suspect]
     Active Substance: VOXELOTOR
     Route: 048
     Dates: start: 20201028, end: 20201028
  3. OXBRYTA [Suspect]
     Active Substance: VOXELOTOR
     Route: 048
     Dates: start: 20201029, end: 20201029
  4. OXBRYTA [Suspect]
     Active Substance: VOXELOTOR
     Route: 048
     Dates: start: 2020
  5. FOLIC ACID [Concomitant]
     Active Substance: FOLIC ACID
     Indication: Product used for unknown indication
     Route: 048
     Dates: start: 20161119
  6. HYDROXYUREA [Concomitant]
     Active Substance: HYDROXYUREA
     Indication: Product used for unknown indication
     Dosage: SUN, TUE, THURS AND SAT
     Route: 048
     Dates: start: 20140506
  7. HYDROXYUREA [Concomitant]
     Active Substance: HYDROXYUREA
     Dosage: MON, WED, FRI
     Route: 048
     Dates: start: 20140506
  8. OXYCODONE HYDROCHLORIDE [Concomitant]
     Active Substance: OXYCODONE HYDROCHLORIDE
     Indication: Pain
     Route: 048
     Dates: start: 20170106
  9. CALCIUM\CHOLECALCIFEROL [Concomitant]
     Active Substance: CALCIUM\CHOLECALCIFEROL
     Indication: Product used for unknown indication
     Dosage: 500-400 MG
     Route: 048
     Dates: start: 20200608
  10. LIDODERM [Concomitant]
     Active Substance: LIDOCAINE
     Indication: Product used for unknown indication
     Dosage: APPLY 3 PATCHES DAILY TO BACK AND SHOULDER FOR 12 HOURS, THEN REMOVE FOR 12 HOURS, MAY CUT PATCHES
     Dates: start: 20210528
  11. JADENU [Concomitant]
     Active Substance: DEFERASIROX
     Indication: Blood iron increased
     Dosage: DOSAGE NOT PROVIDED
  12. HUMAN RED BLOOD CELL [Concomitant]
     Active Substance: HUMAN RED BLOOD CELL
     Indication: Sickle cell disease
     Dosage: NO DOSAGE PROVIDED

REACTIONS (2)
  - Sickle cell anaemia with crisis [Recovered/Resolved]
  - Diarrhoea [Recovering/Resolving]

NARRATIVE: CASE EVENT DATE: 20200601
